FAERS Safety Report 19235542 (Version 1)
Quarter: 2021Q2

REPORT INFORMATION
  Report Type: Other
  Country: AT (occurrence: AT)
  Receive Date: 20210510
  Receipt Date: 20210510
  Transmission Date: 20210717
  Serious: Yes (Hospitalization)
  Sender: FDA-Public Use
  Company Number: AT-CELLTRION INC.-2018AT025431

PATIENT

DRUGS (40)
  1. FORTECORTIN [DEXAMETHASONE] [Concomitant]
     Active Substance: DEXAMETHASONE
     Indication: VERTIGO
     Dosage: ONGOING = NOT CHECKED
     Route: 065
     Dates: start: 20190819, end: 20190912
  2. MACROGOL [Concomitant]
     Active Substance: POLYETHYLENE GLYCOLS
     Indication: PRODUCT USED FOR UNKNOWN INDICATION
     Dosage: ONGOING = NOT CHECKED
     Route: 065
     Dates: start: 20180719
  3. ONDANSAN [Concomitant]
     Active Substance: ONDANSETRON HYDROCHLORIDE
     Dosage: UNK
     Route: 065
     Dates: start: 20180709, end: 20190206
  4. HYDAL [Concomitant]
     Active Substance: HYDROMORPHONE HYDROCHLORIDE
     Dosage: UNK
     Route: 065
     Dates: start: 20180727
  5. NOVALGIN (METAMIZOLE SODIUM) [Concomitant]
     Active Substance: METAMIZOLE SODIUM
     Indication: PRODUCT USED FOR UNKNOWN INDICATION
     Dosage: ONGOING = CHECKED
     Route: 065
     Dates: start: 20180727
  6. NAVELBINE [Suspect]
     Active Substance: VINORELBINE TARTRATE
     Indication: HER2 POSITIVE BREAST CANCER
     Dosage: 50 MG (MOST RECENT DOSE PRIOR TO THE EVENT: 30/NOV/2018, 13/JUN/2019)
     Route: 048
     Dates: start: 20180719
  7. AROMASIN [Suspect]
     Active Substance: EXEMESTANE
     Indication: HER2 POSITIVE BREAST CANCER
     Dosage: 25 MG, DAILY (MOST RECENT DOSE: 07/MAY/2019 )
     Route: 048
     Dates: start: 20180719
  8. IMODIUM [Concomitant]
     Active Substance: LOPERAMIDE HYDROCHLORIDE
     Indication: DIARRHOEA
     Dosage: ONGOING = CHECKED
     Route: 065
     Dates: start: 20180731
  9. TRASTUZUMAB EMTANSINE [Suspect]
     Active Substance: ADO-TRASTUZUMAB EMTANSINE
     Indication: HER2 POSITIVE BREAST CANCER
     Dosage: 201.6 MG, EVERY 3 WEEKS (MOST RECENT DOSE PRIOR TO THE EVENT: 29/AUG/2019, 03/OCT/2019)
     Route: 042
     Dates: start: 20190829, end: 20190829
  10. ONTRUZANT [Suspect]
     Active Substance: TRASTUZUMAB-DTTB
     Dosage: 336MG, EVERY 3 WEEKS (MOST RECENT DOSE ON 04/JUL/2019)
     Route: 042
     Dates: start: 20190613
  11. BEPANTHEN EYE [Concomitant]
     Active Substance: DEXPANTHENOL\HYALURONATE SODIUM
     Indication: CONJUNCTIVITIS
     Dosage: ONGOING = CHECKED
     Dates: start: 20190221
  12. DUROTIV [Concomitant]
     Active Substance: ESOMEPRAZOLE
     Dosage: UNK
     Dates: start: 20190919
  13. FENISTIL [Concomitant]
     Active Substance: DIMETHINDENE
     Indication: PRODUCT USED FOR UNKNOWN INDICATION
     Dosage: UNK
     Route: 065
     Dates: start: 20180809, end: 20190704
  14. DEXAMETHASONE. [Concomitant]
     Active Substance: DEXAMETHASONE
     Dosage: UNK
     Route: 065
     Dates: start: 20190829
  15. FENISTIL [Concomitant]
     Active Substance: DIMETHINDENE
     Dosage: UNK
  16. MAGNESIUM SUCCINATE [Concomitant]
     Dosage: UNK
     Dates: start: 20190819
  17. HYDAL [Concomitant]
     Active Substance: HYDROMORPHONE HYDROCHLORIDE
     Indication: DYSPEPSIA
     Dosage: UNK
     Route: 065
  18. AZITHROMYCIN ANHYDROUS. [Concomitant]
     Active Substance: AZITHROMYCIN ANHYDROUS
     Indication: PYREXIA
     Dosage: ONGOING = NOT CHECKED
     Route: 065
     Dates: start: 20190910, end: 20190912
  19. VITAMINS WITH MINERALS [Concomitant]
     Active Substance: MINERALS\VITAMINS
     Dosage: ONGOING = CHECKED
     Route: 065
     Dates: start: 20181205
  20. DEXABENE [Concomitant]
     Indication: PRODUCT USED FOR UNKNOWN INDICATION
     Dosage: UNK
     Route: 065
     Dates: start: 20180809, end: 20190704
  21. DUROTIV [Concomitant]
     Active Substance: ESOMEPRAZOLE
     Indication: NAUSEA
     Dosage: UNK
     Route: 065
     Dates: start: 20180819
  22. HALDOL [Concomitant]
     Active Substance: HALOPERIDOL
     Indication: DYSPEPSIA
     Dosage: UNK
     Route: 065
     Dates: start: 20180727, end: 20180815
  23. KYTRIL [Concomitant]
     Active Substance: GRANISETRON HYDROCHLORIDE
     Dosage: ONGOING = CHECKED
     Route: 065
     Dates: start: 20190829
  24. FEMARA [Suspect]
     Active Substance: LETROZOLE
     Indication: HER2 POSITIVE BREAST CANCER
     Dosage: 2.5 MG, DAILY (RECENT DOSE ON 19/AUG/2019)
     Route: 048
     Dates: start: 20190508
  25. DUROTIV [Concomitant]
     Active Substance: ESOMEPRAZOLE
     Indication: DYSPEPSIA
     Dosage: UNK
     Route: 065
     Dates: start: 20180727, end: 20190615
  26. HALDOL [Concomitant]
     Active Substance: HALOPERIDOL
     Indication: NAUSEA
     Dosage: UNK
     Route: 065
     Dates: start: 20180731, end: 20180815
  27. TRASTUZUMAB (UNKNOWN) [Suspect]
     Active Substance: TRASTUZUMAB
     Indication: HER2 POSITIVE BREAST CANCER
     Dosage: 440 MG, EVERY 3 WEEKS (MOST RECENT DOSE PRIOR TO THE EVENT: 09/AUG/2018, 30/AUG/2018)
     Route: 042
     Dates: start: 20180719
  28. ONTRUZANT [Suspect]
     Active Substance: TRASTUZUMAB-DTTB
     Indication: HER2 POSITIVE BREAST CANCER
     Dosage: 336 MG, EVERY 3 WEEKS
     Route: 042
     Dates: start: 20181129, end: 20190516
  29. APREDNISLON [Concomitant]
     Active Substance: PREDNISOLONE
     Dosage: ONGOING = NOT CHECKED
     Route: 065
     Dates: start: 20190912, end: 20191114
  30. ONDANSETRON [Concomitant]
     Active Substance: ONDANSETRON
     Indication: PRODUCT USED FOR UNKNOWN INDICATION
     Dosage: UNK
     Route: 065
     Dates: start: 20180709
  31. XGEVA [Concomitant]
     Active Substance: DENOSUMAB
     Dosage: ONGOING = CHECKED
     Route: 065
     Dates: start: 20181215
  32. ZOFRAN [Concomitant]
     Active Substance: ONDANSETRON HYDROCHLORIDE
     Indication: PRODUCT USED FOR UNKNOWN INDICATION
     Dosage: UNK
     Route: 065
     Dates: start: 20180920
  33. ONTRUZANT [Suspect]
     Active Substance: TRASTUZUMAB-DTTB
     Dosage: 336 MG, EVERY 3 WEEKS
     Route: 042
     Dates: start: 20181129, end: 20190516
  34. ONTRUZANT [Suspect]
     Active Substance: TRASTUZUMAB-DTTB
     Dosage: 336MG, EVERY 3 WEEKS (MOST RECENT DOSE ON 04/JUL/2019)
     Route: 042
     Dates: start: 20190613
  35. PERTUZUMAB. [Suspect]
     Active Substance: PERTUZUMAB
     Indication: HER2 POSITIVE BREAST CANCER
     Dosage: 840 MG, EVERY 3 WEEKS (MOST RECENT DOSE PRIOR TO THE EVENT 19/JUL/2018 MOST RECENT DOSE PRIOR TO THE
     Route: 042
     Dates: start: 20180719, end: 20180719
  36. VINORELBINE TARTRATE. [Suspect]
     Active Substance: VINORELBINE TARTRATE
     Indication: HER2 POSITIVE BREAST CANCER
     Dosage: MOST RECENT DOSE PRIOR TO THE EVENT: 30/NOV/2018
     Route: 048
     Dates: start: 20180719
  37. EUTHYROX [Concomitant]
     Active Substance: LEVOTHYROXINE SODIUM
     Indication: PRODUCT USED FOR UNKNOWN INDICATION
     Dosage: ONGOING = CHECKED
  38. ONDANSAN [Concomitant]
     Active Substance: ONDANSETRON HYDROCHLORIDE
     Dosage: UNK
  39. HYDAL [Concomitant]
     Active Substance: HYDROMORPHONE HYDROCHLORIDE
     Indication: NAUSEA
     Dosage: ONGOING = CHECKED
     Route: 065
     Dates: start: 20180727
  40. ULSAL [Concomitant]
     Active Substance: RANITIDINE HYDROCHLORIDE
     Indication: PRODUCT USED FOR UNKNOWN INDICATION
     Dosage: UNK
     Route: 065
     Dates: start: 20180809, end: 20190704

REACTIONS (12)
  - Vertigo [Recovered/Resolved]
  - Nausea [Recovered/Resolved]
  - Pain [Recovering/Resolving]
  - Vertigo [Not Recovered/Not Resolved]
  - Dry skin [Recovered/Resolved]
  - Dysphagia [Recovered/Resolved]
  - Infusion related reaction [Recovered/Resolved]
  - Dyspepsia [Recovered/Resolved]
  - Mucosal dryness [Recovered/Resolved]
  - Diarrhoea [Not Recovered/Not Resolved]
  - Nausea [Recovered/Resolved]
  - Pyrexia [Recovered/Resolved]

NARRATIVE: CASE EVENT DATE: 20180727
